FAERS Safety Report 12550873 (Version 1)
Quarter: 2016Q3

REPORT INFORMATION
  Report Type: Spontaneous
  Country: ZA (occurrence: ZA)
  Receive Date: 20160712
  Receipt Date: 20160712
  Transmission Date: 20161109
  Serious: Yes (Other)
  Sender: FDA-Public Use
  Company Number: ZA-TEVA-673830ISR

PATIENT
  Sex: Male

DRUGS (1)
  1. TEVA BICALUTAMIDE [Suspect]
     Active Substance: BICALUTAMIDE
     Route: 048
     Dates: start: 2015

REACTIONS (3)
  - Bone pain [Unknown]
  - Prostatic specific antigen increased [Unknown]
  - Metastases to bone [Unknown]

NARRATIVE: CASE EVENT DATE: 2015
